FAERS Safety Report 9702255 (Version 2)
Quarter: 2014Q1

REPORT INFORMATION
  Report Type: Spontaneous
  Country: US (occurrence: US)
  Receive Date: 20131121
  Receipt Date: 20140312
  Transmission Date: 20141002
  Serious: No
  Sender: FDA-Public Use
  Company Number: US-TEVA-445688USA

PATIENT
  Sex: Female

DRUGS (1)
  1. COPAXONE [Suspect]
     Indication: MULTIPLE SCLEROSIS

REACTIONS (6)
  - Tooth fracture [Unknown]
  - Mastication disorder [Unknown]
  - Pain [Unknown]
  - Teeth brittle [Not Recovered/Not Resolved]
  - Tooth loss [Not Recovered/Not Resolved]
  - Tooth disorder [Not Recovered/Not Resolved]
